FAERS Safety Report 8189908-1 (Version None)
Quarter: 2012Q1

REPORT INFORMATION
  Report Type: 
  Country: None (occurrence: None)
  Receive Date: 20120307
  Receipt Date: 20120227
  Transmission Date: 20120608
  Serious: Yes (Other)
  Sender: FDA-Public Use
  Company Number: US-JNJFOC-20120204277

PATIENT
  Sex: Female

DRUGS (13)
  1. OXYCODONE AND ACETAMINOPHEN [Concomitant]
     Indication: PAIN
     Route: 048
  2. ATIVAN [Concomitant]
     Route: 065
  3. REMICADE [Suspect]
     Indication: RHEUMATOID ARTHRITIS
     Dosage: 3MG/KG
     Route: 042
     Dates: start: 20120125
  4. ALLEGRA [Concomitant]
     Indication: MULTIPLE ALLERGIES
     Route: 065
  5. BENADRYL [Concomitant]
     Indication: PREMEDICATION
     Route: 065
  6. FLOVENT HFA [Concomitant]
     Indication: ASTHMA
     Route: 055
  7. TYLENOL-500 [Concomitant]
     Indication: PREMEDICATION
     Route: 065
  8. FENTANYL [Concomitant]
     Indication: PAIN
     Route: 062
  9. LUNESTA [Concomitant]
     Route: 048
  10. ARAVA [Concomitant]
     Indication: RHEUMATOID ARTHRITIS
     Route: 065
  11. LISINOPRIL [Concomitant]
     Indication: BLOOD PRESSURE
     Route: 065
  12. ALBUTEROL [Concomitant]
     Route: 055
  13. CYMBALTA [Concomitant]
     Route: 065

REACTIONS (11)
  - PRURITUS [None]
  - SYNOVITIS [None]
  - MYALGIA [None]
  - DRUG EFFECT DECREASED [None]
  - PALLOR [None]
  - FATIGUE [None]
  - MUSCULOSKELETAL STIFFNESS [None]
  - MYOSITIS [None]
  - INFUSION RELATED REACTION [None]
  - TENOSYNOVITIS [None]
  - NAUSEA [None]
